FAERS Safety Report 18554463 (Version 3)
Quarter: 2021Q1

REPORT INFORMATION
  Report Type: Spontaneous
  Country: US (occurrence: US)
  Receive Date: 20201127
  Receipt Date: 20210120
  Transmission Date: 20210419
  Serious: Yes (Hospitalization, Other)
  Sender: FDA-Public Use
  Company Number: US-ASTRAZENECA-2020SF55939

PATIENT
  Age: 969 Month
  Sex: Male
  Weight: 83 kg

DRUGS (14)
  1. BUDESONIDE AND FORMOTEROL [Suspect]
     Active Substance: BUDESONIDE\FORMOTEROL
     Indication: CHRONIC OBSTRUCTIVE PULMONARY DISEASE
     Dosage: 160/4.5MCG 2 PUFFS TWICE DAILY
     Route: 055
     Dates: start: 2019
  2. DALIRESP [Suspect]
     Active Substance: ROFLUMILAST
     Dosage: UNKNOWN
     Route: 048
  3. INCRUSE ELLIPTA [Concomitant]
     Active Substance: UMECLIDINIUM BROMIDE
     Indication: CHRONIC OBSTRUCTIVE PULMONARY DISEASE
  4. SYMBICORT [Suspect]
     Active Substance: BUDESONIDE\FORMOTEROL FUMARATE DIHYDRATE
     Indication: CHRONIC OBSTRUCTIVE PULMONARY DISEASE
     Dosage: 160/4.5MCG 2 PUFFS TWICE DAILY.
     Route: 055
     Dates: start: 2016, end: 2019
  5. SYMBICORT [Suspect]
     Active Substance: BUDESONIDE\FORMOTEROL FUMARATE DIHYDRATE
     Indication: CHRONIC OBSTRUCTIVE PULMONARY DISEASE
     Dosage: 160MCG
     Route: 055
     Dates: start: 20201202, end: 20201215
  6. ASPIRIN. [Concomitant]
     Active Substance: ASPIRIN
  7. ATROVENT HFA [Concomitant]
     Active Substance: IPRATROPIUM BROMIDE
  8. BUDESONIDE AND FORMOTEROL [Suspect]
     Active Substance: BUDESONIDE\FORMOTEROL
     Indication: CHRONIC OBSTRUCTIVE PULMONARY DISEASE
     Dosage: 160/4.5MCG 2 PUFFS TWICE DAILY
     Route: 055
     Dates: start: 2016, end: 2019
  9. TOBRAMYCIN. [Concomitant]
     Active Substance: TOBRAMYCIN
     Indication: NOSOCOMIAL INFECTION
  10. SYNTHROID GENERIC [Concomitant]
     Active Substance: LEVOTHYROXINE SODIUM
  11. ATROVASTATIN [Concomitant]
     Active Substance: ATORVASTATIN CALCIUM
  12. PREDNISONE. [Concomitant]
     Active Substance: PREDNISONE
  13. VITAMINS [Concomitant]
     Active Substance: VITAMINS
  14. AGGRENOX [Concomitant]
     Active Substance: ASPIRIN\DIPYRIDAMOLE

REACTIONS (7)
  - Hypoacusis [Unknown]
  - Device malfunction [Unknown]
  - Nosocomial infection [Unknown]
  - Pneumonia [Recovered/Resolved]
  - Product use issue [Not Recovered/Not Resolved]
  - Oral candidiasis [Recovered/Resolved]
  - Drug hypersensitivity [Unknown]

NARRATIVE: CASE EVENT DATE: 202003
